FAERS Safety Report 25391404 (Version 1)
Quarter: 2025Q2

REPORT INFORMATION
  Report Type: Report from Study
  Country: US (occurrence: US)
  Receive Date: 20250603
  Receipt Date: 20250603
  Transmission Date: 20250716
  Serious: Yes (Other)
  Sender: ETON PHARMACEUTICALS, INC
  Company Number: US-ETON PHARMACEUTICALS, INC-2025ETO000198

PATIENT

DRUGS (4)
  1. ALKINDI SPRINKLE [Suspect]
     Active Substance: HYDROCORTISONE
     Indication: Hypopituitarism
     Dosage: 1 MILLIGRAM, BID ( 1 MG IN THE  MORNING, 0.5 MG IN THE AFTERNOON, AND 1 MG IN THE EVENING)
     Route: 048
     Dates: start: 20250425
  2. ALKINDI SPRINKLE [Suspect]
     Active Substance: HYDROCORTISONE
     Dosage: 0.5 MILLIGRAM, QD ( 1 MG IN THE  MORNING, 0.5 MG IN THE AFTERNOON, AND 1 MG IN THE EVENING)
     Route: 048
     Dates: start: 20250425
  3. SYNTHROID [Concomitant]
     Active Substance: LEVOTHYROXINE SODIUM
     Indication: Product used for unknown indication
  4. PULMICORT TURBUHALER [Concomitant]
     Active Substance: BUDESONIDE
     Indication: Product used for unknown indication

REACTIONS (2)
  - Ileus [Unknown]
  - Retching [Unknown]

NARRATIVE: CASE EVENT DATE: 20250101
